FAERS Safety Report 23528082 (Version 1)
Quarter: 2024Q1

REPORT INFORMATION
  Report Type: Spontaneous
  Country: US (occurrence: None)
  Receive Date: 20240215
  Receipt Date: 20240215
  Transmission Date: 20240410
  Serious: No
  Sender: FDA-Public Use
  Company Number: None

PATIENT
  Age: 80 Year
  Sex: Female
  Weight: 81.65 kg

DRUGS (1)
  1. FORTEO [Suspect]
     Active Substance: TERIPARATIDE
     Indication: Senile osteoporosis
     Dosage: OTHER STRENGTH : MCG/ML;?FREQUENCY : DAILY;?
     Route: 058
     Dates: start: 202308

REACTIONS (3)
  - COVID-19 [None]
  - Lung disorder [None]
  - Intentional dose omission [None]
